FAERS Safety Report 6063565-2 (Version None)
Quarter: 2009Q1

REPORT INFORMATION
  Report Type: 
  Country: None (occurrence: None)
  Receive Date: 20090129
  Receipt Date: 20090116
  Transmission Date: 20090719
  Serious: No
  Sender: FDA-Public Use
  Company Number: US025329

PATIENT
  Age: 6 Year
  Sex: Female

DRUGS (1)
  1. FENTORA [Suspect]
     Dosage: ONCE BUCCAL
     Route: 002

REACTIONS (1)
  - ACCIDENTAL EXPOSURE [None]
